FAERS Safety Report 12485480 (Version 1)
Quarter: 2016Q2

REPORT INFORMATION
  Report Type: Spontaneous
  Country: US (occurrence: US)
  Receive Date: 20160621
  Receipt Date: 20160621
  Transmission Date: 20160815
  Serious: No
  Sender: FDA-Public Use
  Company Number: US-SA-2016SA031337

PATIENT
  Age: 54 Year
  Sex: Female
  Weight: 120 kg

DRUGS (14)
  1. NORMAL SALINE [Concomitant]
     Active Substance: SODIUM CHLORIDE
     Indication: FLUSHING
     Dosage: 0.9% AS DIRECTED
     Route: 042
     Dates: start: 20160108
  2. HEPARIN [Concomitant]
     Active Substance: HEPARIN SODIUM
     Indication: FLUSHING
     Dosage: 100UN/ML
     Route: 042
     Dates: start: 20160108
  3. MUCINEX [Concomitant]
     Active Substance: GUAIFENESIN
     Dates: start: 20150908
  4. ALBUTEROL. [Concomitant]
     Active Substance: ALBUTEROL
     Dosage: 1 DOSE AS DIRECTED
  5. SPIRIVA [Concomitant]
     Active Substance: TIOTROPIUM BROMIDE MONOHYDRATE
     Dosage: 2 PUFFS DAILY
     Dates: start: 20150406
  6. EPIPEN [Concomitant]
     Active Substance: EPINEPHRINE
     Indication: ANAPHYLACTIC REACTION
     Route: 030
     Dates: start: 20160108
  7. CYCLOBENZAPRINE [Concomitant]
     Active Substance: CYCLOBENZAPRINE
     Dates: start: 20150616
  8. DUONEB [Concomitant]
     Active Substance: ALBUTEROL SULFATE\IPRATROPIUM BROMIDE
     Dosage: 1 VIAL EVERY 4 HOURS
     Dates: start: 20150908
  9. ANORO ELLIPTA [Concomitant]
     Active Substance: UMECLIDINIUM BROMIDE\VILANTEROL TRIFENATATE
     Dates: start: 20151215
  10. CEREZYME [Suspect]
     Active Substance: IMIGLUCERASE
     Indication: LIPIDOSIS
     Dosage: DOSE:44.09 UNIT(S)/KILOGRAM BODYWEIGHT
     Route: 042
     Dates: start: 20100430
  11. SYMBICORT [Concomitant]
     Active Substance: BUDESONIDE\FORMOTEROL FUMARATE DIHYDRATE
     Dates: start: 20150603
  12. OXYGEN. [Concomitant]
     Active Substance: OXYGEN
     Dosage: 2 LITER NC CONT
     Dates: start: 20151006
  13. CHANTIX [Concomitant]
     Active Substance: VARENICLINE TARTRATE
     Dates: start: 20150908
  14. HYDROCODONE [Concomitant]
     Active Substance: HYDROCODONE

REACTIONS (1)
  - Nasopharyngitis [Unknown]
